FAERS Safety Report 23813542 (Version 1)
Quarter: 2024Q2

REPORT INFORMATION
  Report Type: Spontaneous
  Country: US (occurrence: US)
  Receive Date: 20240503
  Receipt Date: 20240503
  Transmission Date: 20240716
  Serious: Yes (Death, Life-Threatening)
  Sender: FDA-Public Use
  Company Number: US-California Department of Public Health-2156450

PATIENT
  Age: 4 Month
  Sex: Female
  Weight: 4.2 kg

DRUGS (1)
  1. BABYBIG [Suspect]
     Active Substance: HUMAN BOTULINUM NEUROTOXIN A/B IMMUNE GLOBULIN
     Route: 041
     Dates: start: 20240330, end: 20240330

REACTIONS (1)
  - Death [Fatal]

NARRATIVE: CASE EVENT DATE: 20240419
